FAERS Safety Report 4875099-9 (Version None)
Quarter: 2006Q1

REPORT INFORMATION
  Report Type: 
  Country: None (occurrence: None)
  Receive Date: 20060109
  Receipt Date: 20051206
  Transmission Date: 20060701
  Serious: Yes (Life-Threatening, Hospitalization)
  Sender: FDA-Public Use
  Company Number: FR-GLAXOSMITHKLINE-B0402717A

PATIENT
  Age: 40 Year
  Sex: Male

DRUGS (4)
  1. FOSAMPRENAVIR [Suspect]
     Indication: ACQUIRED IMMUNODEFICIENCY SYNDROME
     Route: 048
     Dates: start: 20051027, end: 20051107
  2. KIVEXA [Suspect]
     Indication: ACQUIRED IMMUNODEFICIENCY SYNDROME
     Dosage: 2TAB PER DAY
     Route: 048
     Dates: start: 20051025, end: 20051105
  3. VIDEX [Suspect]
     Indication: ACQUIRED IMMUNODEFICIENCY SYNDROME
     Dosage: 1UNIT PER DAY
     Route: 048
     Dates: start: 20051025, end: 20051105
  4. NORVIR [Concomitant]
     Indication: ACQUIRED IMMUNODEFICIENCY SYNDROME
     Route: 065
     Dates: start: 20051027, end: 20051101

REACTIONS (7)
  - ABDOMINAL PAIN [None]
  - ANAEMIA [None]
  - DIARRHOEA [None]
  - GENERAL PHYSICAL HEALTH DETERIORATION [None]
  - MUSCLE HAEMORRHAGE [None]
  - PERITONEAL HAEMORRHAGE [None]
  - PYREXIA [None]
